FAERS Safety Report 7700780-3 (Version None)
Quarter: 2011Q3

REPORT INFORMATION
  Report Type: 
  Country: None (occurrence: None)
  Receive Date: 20110822
  Receipt Date: 20110817
  Transmission Date: 20111222
  Serious: Yes (Other)
  Sender: FDA-Public Use
  Company Number: US-PFIZER INC-2011138452

PATIENT
  Sex: Female

DRUGS (6)
  1. TOPROL-XL [Concomitant]
     Indication: HYPERTENSION
     Dosage: UNK
     Dates: start: 20000101
  2. LIPITOR [Concomitant]
     Indication: BLOOD CHOLESTEROL INCREASED
     Dosage: UNK
     Dates: start: 20000101
  3. PREMARIN [Concomitant]
     Indication: OESTROGEN THERAPY
     Dosage: UNK
     Dates: start: 19920101
  4. CHANTIX [Suspect]
     Indication: SMOKING CESSATION THERAPY
     Dosage: UNK
     Dates: start: 20070117, end: 20070301
  5. LIDODERM [Concomitant]
     Indication: BACK PAIN
     Dosage: UNK
     Dates: start: 20050101
  6. EPIPEN [Concomitant]
     Indication: ARTHROPOD STING
     Dosage: UNK

REACTIONS (9)
  - MULTIPLE INJURIES [None]
  - LOSS OF LIBIDO [None]
  - ANXIETY [None]
  - MENTAL DISORDER [None]
  - LOSS OF CONSCIOUSNESS [None]
  - SUICIDAL IDEATION [None]
  - NERVOUS SYSTEM DISORDER [None]
  - IRRITABILITY [None]
  - DEPRESSION [None]
